FAERS Safety Report 21781559 (Version 1)
Quarter: 2022Q4

REPORT INFORMATION
  Report Type: Spontaneous
  Country: FR (occurrence: FR)
  Receive Date: 20221227
  Receipt Date: 20221227
  Transmission Date: 20230113
  Serious: Yes (Other)
  Sender: FDA-Public Use
  Company Number: None

PATIENT
  Age: 26 Month
  Sex: Male
  Weight: 13 kg

DRUGS (1)
  1. TEGRETOL [Suspect]
     Active Substance: CARBAMAZEPINE
     Indication: Epilepsy
     Dosage: 260 MG (PRISE DE 260 MG AU LIEU DES 50 MG PAR JOUR PRESCRITS)
     Route: 048
     Dates: start: 20221130, end: 20221130

REACTIONS (2)
  - Agitation [Recovered/Resolved]
  - Wrong dose [Recovered/Resolved]

NARRATIVE: CASE EVENT DATE: 20221130
